FAERS Safety Report 16238840 (Version 1)
Quarter: 2019Q2

REPORT INFORMATION
  Report Type: Spontaneous
  Country: US (occurrence: US)
  Receive Date: 20190425
  Receipt Date: 20190425
  Transmission Date: 20190711
  Serious: Yes (Hospitalization)
  Sender: FDA-Public Use
  Company Number: US-TEVA-2019-US-1041342

PATIENT
  Age: 52 Year
  Sex: Male

DRUGS (2)
  1. NOREPINEPHRINE. [Suspect]
     Active Substance: NOREPINEPHRINE
     Indication: SUPPORTIVE CARE
     Route: 050
  2. BACITRACIN. [Concomitant]
     Active Substance: BACITRACIN
     Indication: THERMAL BURN
     Dosage: AT BURN SITE ON THE FOOT; THEN FOOT WRAPPED IN A NON-ADHERENT DRESSING
     Route: 061

REACTIONS (1)
  - Bradycardia [Recovered/Resolved]
